FAERS Safety Report 24767885 (Version 1)
Quarter: 2024Q4

REPORT INFORMATION
  Report Type: Spontaneous
  Country: RO (occurrence: RO)
  Receive Date: 20241223
  Receipt Date: 20241223
  Transmission Date: 20250115
  Serious: Yes (Death, Other)
  Sender: SHIONOGI
  Company Number: RO-shionogi-202400004186

PATIENT
  Age: 63 Year
  Sex: Male

DRUGS (8)
  1. CEFIDEROCOL [Suspect]
     Active Substance: CEFIDEROCOL
     Indication: Abdominal sepsis
  2. CEFIDEROCOL [Suspect]
     Active Substance: CEFIDEROCOL
     Indication: Klebsiella infection
  3. COLISTIN [Suspect]
     Active Substance: COLISTIN
     Indication: Abdominal sepsis
  4. COLISTIN [Suspect]
     Active Substance: COLISTIN
     Indication: Klebsiella infection
  5. TIGECYCLINE [Suspect]
     Active Substance: TIGECYCLINE
     Indication: Abdominal sepsis
  6. TIGECYCLINE [Suspect]
     Active Substance: TIGECYCLINE
     Indication: Klebsiella infection
  7. AMIKACIN [Suspect]
     Active Substance: AMIKACIN
     Indication: Abdominal sepsis
  8. AMIKACIN [Suspect]
     Active Substance: AMIKACIN
     Indication: Klebsiella infection

REACTIONS (1)
  - Death [Fatal]
